FAERS Safety Report 11247932 (Version 1)
Quarter: 2015Q3

REPORT INFORMATION
  Report Type: Spontaneous
  Country: US (occurrence: None)
  Receive Date: 20150707
  Receipt Date: 20150707
  Transmission Date: 20151125
  Serious: Yes (Hospitalization)
  Sender: FDA-Public Use
  Company Number: None

PATIENT
  Sex: Female
  Weight: 72.7 kg

DRUGS (16)
  1. HARVONI [Suspect]
     Active Substance: LEDIPASVIR\SOFOSBUVIR
     Indication: HEPATITIS C
     Route: 048
     Dates: start: 20150227
  2. PROPRANOLOL [Concomitant]
     Active Substance: PROPRANOLOL\PROPRANOLOL HYDROCHLORIDE
  3. FOLIC ACID. [Concomitant]
     Active Substance: FOLIC ACID
  4. LACTULOSE. [Concomitant]
     Active Substance: LACTULOSE
  5. VITAMIN D3 [Concomitant]
     Active Substance: CHOLECALCIFEROL
  6. COLACE [Concomitant]
     Active Substance: DOCUSATE SODIUM
  7. VITAMIN E [Concomitant]
     Active Substance: .ALPHA.-TOCOPHEROL
  8. ZINC [Concomitant]
     Active Substance: ZINC\ZINC CHLORIDE
  9. DEXLANSOPRAZOLE [Concomitant]
     Active Substance: DEXLANSOPRAZOLE
  10. LASIX [Concomitant]
     Active Substance: FUROSEMIDE
  11. AMARYL [Concomitant]
     Active Substance: GLIMEPIRIDE
  12. VITAMIN C [Concomitant]
     Active Substance: ASCORBIC ACID
  13. ERGOCALCIFEROL. [Concomitant]
     Active Substance: ERGOCALCIFEROL
  14. ASPIRIN. [Concomitant]
     Active Substance: ASPIRIN
  15. PROBIOTIC [Concomitant]
     Active Substance: PROBIOTICS NOS
  16. XIFAXAN [Concomitant]
     Active Substance: RIFAXIMIN

REACTIONS (1)
  - Urinary tract infection [None]

NARRATIVE: CASE EVENT DATE: 20150303
